FAERS Safety Report 8728249 (Version 3)
Quarter: 2012Q4

REPORT INFORMATION
  Report Type: 
  Country: US (occurrence: US)
  Receive Date: 20120817
  Receipt Date: 20121127
  Transmission Date: 20130627
  Serious: Yes (Other)
  Sender: FDA-Public Use
  Company Number: US-PFIZER INC-2012198294

PATIENT
  Age: 51 Year
  Sex: Female
  Weight: 87.08 kg

DRUGS (14)
  1. SUTENT [Suspect]
     Indication: METASTATIC RENAL CELL CARCINOMA
     Dosage: 50 mg, cyclic (42 day cycle)
     Dates: start: 20120730
  2. SUTENT [Suspect]
     Dosage: 50 mg, UNK
     Dates: start: 20121022, end: 20121118
  3. LOPERAMIDE HYDROCHLORIDE [Concomitant]
     Indication: DIARRHEA
  4. GABAPENTIN [Concomitant]
     Dosage: 300 mg, as needed
  5. PERCOCET [Concomitant]
     Dosage: 5/500 as needed
  6. LEXAPRO [Concomitant]
  7. FOSAMAX [Concomitant]
     Dosage: UNK, weekly
  8. TRICOR [Concomitant]
     Dosage: 134 mg, UNK
  9. LOSARTAN [Concomitant]
     Dosage: 100 mg, UNK
  10. TOPROL [Concomitant]
     Dosage: 25 mg, UNK
  11. TOPROL [Concomitant]
     Dosage: 50 mg, UNK
  12. VITAMIN C [Concomitant]
     Dosage: 2000u
  13. VITAMIN D [Concomitant]
     Dosage: 2000u
  14. ASPIRIN [Concomitant]
     Dosage: 81 mg, UNK

REACTIONS (16)
  - Hypertension [Unknown]
  - Bloody discharge [Unknown]
  - Headache [Unknown]
  - Weight decreased [Not Recovered/Not Resolved]
  - Decreased appetite [Not Recovered/Not Resolved]
  - Nausea [Unknown]
  - Stomatitis [Recovering/Resolving]
  - Constipation [Unknown]
  - Benign breast neoplasm [Unknown]
  - Breast discharge [Unknown]
  - Alopecia [Unknown]
  - Nasal dryness [Unknown]
  - Fatigue [Unknown]
  - Eyelid pain [Unknown]
  - Pain in extremity [Recovered/Resolved]
  - Tongue blistering [Unknown]
